FAERS Safety Report 7264648-1 (Version None)
Quarter: 2011Q1

REPORT INFORMATION
  Report Type: 
  Country: None (occurrence: None)
  Receive Date: 20110119
  Receipt Date: 20110104
  Transmission Date: 20110831
  Serious: Yes (Other)
  Sender: FDA-Public Use
  Company Number: AUR-APL-2010-01054

PATIENT
  Age: 82 Year
  Sex: Male
  Weight: 77 kg

DRUGS (8)
  1. LISINOPRIL [Suspect]
     Indication: HYPERTENSION
     Dosage: 10 MG DAILY, ORAL
     Route: 048
  2. PROTONIX [Suspect]
     Indication: GASTROOESOPHAGEAL REFLUX DISEASE
     Dosage: 40MG, BID, ORAL
     Route: 048
  3. PLAVIX [Suspect]
     Indication: CARDIAC DISORDER
     Dosage: 75 MG, DAILY, ORAL
     Route: 048
  4. ASPIRIN [Suspect]
     Indication: CARDIAC DISORDER
     Dosage: 325 MG DAILY, ORAL
     Route: 048
  5. SULFADIAZIDE SILVER 1% CREAM [Suspect]
     Indication: THERMAL BURN
     Dosage: APPIED DAILY, TOPICALLY TO BURN
     Route: 061
     Dates: start: 20091021, end: 20091201
  6. METROPROLOL SUCCINATE ER [Suspect]
     Indication: HYPERTENSION
     Dosage: 50 MG DAILY, ORAL
     Route: 048
  7. CRESTOR [Suspect]
     Indication: BLOOD CHOLESTEROL INCREASED
     Dosage: 10 MG, DAILY, ORAL
     Route: 048
  8. METAMUCIL-2 [Suspect]
     Indication: CONSTIPATION
     Dosage: 2 CAPSULES DAILY, ORAL
     Route: 048

REACTIONS (4)
  - CONDITION AGGRAVATED [None]
  - IMPAIRED HEALING [None]
  - HYPERSENSITIVITY [None]
  - THERMAL BURN [None]
